FAERS Safety Report 21492684 (Version 7)
Quarter: 2024Q3

REPORT INFORMATION
  Report Type: Report from Study
  Country: DE (occurrence: DE)
  Receive Date: 20221021
  Receipt Date: 20240730
  Transmission Date: 20241017
  Serious: Yes (Other)
  Sender: ROCHE
  Company Number: DE-ROCHE-2831972

PATIENT
  Age: 58 Year
  Sex: Female

DRUGS (10)
  1. OCREVUS [Suspect]
     Active Substance: OCRELIZUMAB
     Indication: Relapsing-remitting multiple sclerosis
     Dosage: 600 MG 1 IN 182 DAYS
     Route: 042
     Dates: start: 20210303
  2. OCREVUS [Suspect]
     Active Substance: OCRELIZUMAB
     Route: 042
     Dates: start: 20210317
  3. OCREVUS [Suspect]
     Active Substance: OCRELIZUMAB
     Route: 042
     Dates: start: 20210922
  4. CORTISONE [Suspect]
     Active Substance: CORTISONE
     Indication: Product used for unknown indication
     Route: 065
  5. OPIPRAMOL HYDROCHLORIDE [Concomitant]
     Active Substance: OPIPRAMOL HYDROCHLORIDE
     Dosage: 0-0-1
  6. CHOLECALCIFEROL [Concomitant]
     Active Substance: CHOLECALCIFEROL
  7. ZINC [Concomitant]
     Active Substance: ZINC
  8. VITAMIN C [Concomitant]
     Active Substance: ASCORBIC ACID
  9. SYMBIOLACT [Concomitant]
  10. HYLO DUAL [Concomitant]

REACTIONS (27)
  - Erythema [Recovered/Resolved]
  - Feeling hot [Recovered/Resolved]
  - Gastritis [Recovered/Resolved]
  - Headache [Recovered/Resolved]
  - Fatigue [Not Recovered/Not Resolved]
  - Herpes virus infection [Recovered/Resolved]
  - Genital infection bacterial [Recovered/Resolved]
  - Conjunctivitis [Recovered/Resolved]
  - Nocturia [Recovered/Resolved]
  - Swelling of eyelid [Recovered/Resolved]
  - Erythema of eyelid [Recovered/Resolved]
  - Abdominal pain upper [Recovered/Resolved]
  - Abdominal distension [Not Recovered/Not Resolved]
  - COVID-19 [Recovered/Resolved]
  - Gastrointestinal disorder [Recovered/Resolved]
  - Frequent bowel movements [Recovered/Resolved]
  - Abnormal loss of weight [Recovered/Resolved]
  - Blood pressure fluctuation [Recovered/Resolved]
  - Heart rate irregular [Recovered/Resolved]
  - Dyspnoea [Recovered/Resolved]
  - Tumour necrosis [Not Recovered/Not Resolved]
  - Spinal pain [Recovered/Resolved]
  - Histamine intolerance [Recovered/Resolved]
  - Flatulence [Not Recovered/Not Resolved]
  - Dyspepsia [Not Recovered/Not Resolved]
  - Pyloric sphincter insufficiency [Not Recovered/Not Resolved]
  - Nasopharyngitis [Recovered/Resolved]

NARRATIVE: CASE EVENT DATE: 20210303
